FAERS Safety Report 14475195 (Version 1)
Quarter: 2018Q1

REPORT INFORMATION
  Report Type: Other
  Country: SE (occurrence: SE)
  Receive Date: 20180201
  Receipt Date: 20180201
  Transmission Date: 20180509
  Serious: Yes (Other)
  Sender: FDA-Public Use
  Company Number: SE-CELLTRION INC.-2018SE017352

PATIENT

DRUGS (3)
  1. REMSIMA [Suspect]
     Active Substance: INFLIXIMAB
     Indication: PSORIATIC ARTHROPATHY
     Dosage: 200 MG
     Route: 065
     Dates: start: 20160211, end: 20160211
  2. REMSIMA [Suspect]
     Active Substance: INFLIXIMAB
     Dosage: 200 MG
     Route: 065
     Dates: start: 20171109, end: 20171109
  3. METHOTREXATE. [Concomitant]
     Active Substance: METHOTREXATE
     Dosage: UNK
     Dates: start: 20150921

REACTIONS (3)
  - Blood pressure fluctuation [Recovered/Resolved]
  - Chills [Recovered/Resolved]
  - Infusion related reaction [Recovered/Resolved]

NARRATIVE: CASE EVENT DATE: 20171108
